FAERS Safety Report 9130094 (Version 1)
Quarter: 2013Q1

REPORT INFORMATION
  Report Type: Report from Study
  Country: JP (occurrence: JP)
  Receive Date: 20130228
  Receipt Date: 20130228
  Transmission Date: 20140127
  Serious: Yes (Other)
  Sender: FDA-Public Use
  Company Number: JP-009507513-2012SP018302

PATIENT
  Age: 62 Year
  Sex: Female
  Weight: 50 kg

DRUGS (18)
  1. PEGINTRON [Suspect]
     Indication: CHRONIC HEPATITIS C
     Dosage: 1.5 MICROGRAM PER KILOGRAM, QW
     Route: 058
     Dates: start: 20120207, end: 20120213
  2. PEGINTRON [Suspect]
     Dosage: 60 MICROGRAM, QW
     Route: 058
     Dates: start: 20120214, end: 20120220
  3. PEGINTRON [Suspect]
     Dosage: 70 MICROGRAM, QW
     Route: 058
     Dates: start: 20120221, end: 20120227
  4. PEGINTRON [Suspect]
     Dosage: 50 MICROGRAM, QW
     Route: 058
     Dates: start: 20120228, end: 20120724
  5. REBETOL [Suspect]
     Indication: CHRONIC HEPATITIS C
     Dosage: 600 MG, QD
     Route: 048
     Dates: start: 20120207, end: 20120227
  6. REBETOL [Suspect]
     Dosage: 200 MG, QD
     Route: 048
     Dates: start: 20120228, end: 20120321
  7. REBETOL [Suspect]
     Dosage: 400 MG, QD
     Route: 048
     Dates: start: 20120322, end: 20120625
  8. REBETOL [Suspect]
     Dosage: 600 MG, QD
     Route: 048
     Dates: start: 20120626, end: 20120731
  9. TELAVIC [Suspect]
     Indication: CHRONIC HEPATITIS C
     Dosage: 1500 MG, QD
     Route: 048
     Dates: start: 20120207, end: 20120305
  10. TELAVIC [Suspect]
     Dosage: 500 MG, QD
     Route: 048
     Dates: start: 20120306, end: 20120312
  11. TELAVIC [Suspect]
     Dosage: 1000 MG, QD
     Route: 048
     Dates: start: 20120313, end: 20120423
  12. TELAVIC [Suspect]
     Dosage: 500 MG, QD
     Route: 048
     Dates: start: 20120424, end: 20120501
  13. REVOLADE [Concomitant]
     Indication: IDIOPATHIC THROMBOCYTOPENIC PURPURA
     Dosage: 12.5 MG, QD
     Route: 048
     Dates: start: 20110303
  14. BLOPRESS [Concomitant]
     Indication: HYPERTENSION
     Dosage: 8 MG, QD
     Route: 048
     Dates: start: 20120316
  15. CELESTAMINE (BETAMETHASONE (+) DEXCHLORPHENIRAMINE MALEATE) [Concomitant]
     Indication: PROPHYLAXIS
     Dosage: UNK UNK, QD
     Route: 048
     Dates: start: 20120403, end: 20120501
  16. CELESTAMINE (BETAMETHASONE (+) DEXCHLORPHENIRAMINE MALEATE) [Concomitant]
     Indication: SKIN DISORDER
  17. HORMONES (UNSPECIFIED) [Concomitant]
     Indication: DIABETES MELLITUS
     Dosage: 14-0-8 IU, QD
     Route: 058
     Dates: start: 20090311
  18. UNISIA [Concomitant]
     Indication: HYPERTENSION
     Dosage: 1 DF, QD
     Route: 048
     Dates: start: 20110729, end: 20120315

REACTIONS (2)
  - Malaise [Recovering/Resolving]
  - Dizziness [Recovering/Resolving]
